FAERS Safety Report 4277017-3 (Version None)
Quarter: 2004Q1

REPORT INFORMATION
  Report Type: 
  Country: None (occurrence: None)
  Receive Date: 20040109
  Receipt Date: 20031222
  Transmission Date: 20041129
  Serious: Yes (Hospitalization)
  Sender: FDA-Public Use
  Company Number: B0318323A

PATIENT
  Age: 37 Year
  Sex: Male

DRUGS (4)
  1. EPIVIR [Suspect]
     Indication: HIV INFECTION
  2. STAVUDINE (STAVUDINE) [Suspect]
     Indication: HIV INFECTION
  3. NEVIRAPINE (NEVIRAPINE) [Suspect]
     Indication: HIV INFECTION
  4. COTRIM [Concomitant]

REACTIONS (13)
  - APHASIA [None]
  - ATAXIA [None]
  - BIOPSY LIVER ABNORMAL [None]
  - CHOLESTASIS [None]
  - CHRONIC HEPATITIS [None]
  - DISEASE RECURRENCE [None]
  - EOSINOPHILIA [None]
  - HEPATIC NECROSIS [None]
  - HEPATITIS C VIRUS [None]
  - IMMUNE RECONSTITUTION SYNDROME [None]
  - MENTAL IMPAIRMENT [None]
  - MOVEMENT DISORDER [None]
  - NUCLEAR MAGNETIC RESONANCE IMAGING BRAIN ABNORMAL [None]
